FAERS Safety Report 25922043 (Version 2)
Quarter: 2025Q4

REPORT INFORMATION
  Report Type: Spontaneous
  Country: BR (occurrence: BR)
  Receive Date: 20251015
  Receipt Date: 20251119
  Transmission Date: 20260118
  Serious: No
  Sender: AMGEN
  Company Number: BR-AMGEN-BRASP2025197315

PATIENT

DRUGS (1)
  1. PEGFILGRASTIM [Suspect]
     Active Substance: PEGFILGRASTIM
     Indication: Product used for unknown indication
     Dosage: UNK, 10 MG/ML SOL INJ CT SER PREENCH VD TRANS X 0.64 ML + APPLIC
     Route: 065

REACTIONS (2)
  - Device malfunction [Unknown]
  - Drug dose omission by device [Unknown]

NARRATIVE: CASE EVENT DATE: 20250919
